FAERS Safety Report 20086232 (Version 2)
Quarter: 2021Q4

REPORT INFORMATION
  Report Type: Spontaneous
  Country: US (occurrence: US)
  Receive Date: 20211118
  Receipt Date: 20211119
  Transmission Date: 20220303
  Serious: No
  Sender: FDA-Public Use
  Company Number: US-SANOFI-00855786

PATIENT
  Sex: Male

DRUGS (1)
  1. ALLEGRA ALLERGY [Suspect]
     Active Substance: FEXOFENADINE HYDROCHLORIDE
     Dosage: 180 MG, QD

REACTIONS (5)
  - Sinus disorder [Unknown]
  - Eye pruritus [Unknown]
  - Sneezing [Unknown]
  - Lacrimation increased [Unknown]
  - Drug ineffective [Unknown]
